FAERS Safety Report 8275736-5 (Version None)
Quarter: 2012Q2

REPORT INFORMATION
  Report Type: 
  Country: None (occurrence: None)
  Receive Date: 20120410
  Receipt Date: 20120410
  Transmission Date: 20120825
  Serious: No
  Sender: FDA-Public Use
  Company Number: None

PATIENT
  Sex: Male
  Weight: 102.0593 kg

DRUGS (2)
  1. SUBOXONE [Suspect]
     Indication: DRUG DEPENDENCE
     Dosage: 2-8 MG FILMS 1X DAILY UNDER TOUNGUE
     Route: 048
     Dates: start: 20120316, end: 20120329
  2. SUBOXONE [Suspect]

REACTIONS (3)
  - PRODUCT BLISTER PACKAGING ISSUE [None]
  - PRODUCT MEASURED POTENCY ISSUE [None]
  - MALAISE [None]
